FAERS Safety Report 23451386 (Version 1)
Quarter: 2024Q1

REPORT INFORMATION
  Report Type: Spontaneous
  Country: US (occurrence: US)
  Receive Date: 20240129
  Receipt Date: 20240129
  Transmission Date: 20240409
  Serious: Yes (Hospitalization)
  Sender: FDA-Public Use
  Company Number: US-INCYTE CORPORATION-2024IN000812

PATIENT

DRUGS (1)
  1. JAKAFI [Suspect]
     Active Substance: RUXOLITINIB
     Indication: Abdominal pain
     Dosage: 15 MILLIGRAM, BID
     Route: 048

REACTIONS (4)
  - Muscular weakness [Unknown]
  - Dysstasia [Unknown]
  - COVID-19 [Unknown]
  - Off label use [Unknown]
